FAERS Safety Report 9250429 (Version 1)
Quarter: 2013Q1

REPORT INFORMATION
  Report Type: Spontaneous
  Country: US (occurrence: None)
  Receive Date: 20130305
  Receipt Date: 20130305
  Transmission Date: 20140127
  Serious: Yes (Other)
  Sender: FDA-Public Use
  Company Number: 163-21880-12061032

PATIENT
  Age: 63 Year
  Sex: Female
  Weight: 77.11 kg

DRUGS (19)
  1. REVLIMID [Suspect]
     Indication: PLASMA CELL MYELOMA
     Dosage: 10 MG, 28 IN 28 D
     Route: 048
     Dates: start: 20120203
  2. CENTRUM SILVER (CENTRUM SILVER) [Concomitant]
  3. MAXALT (RIZATRIPTAN BENZOATE) [Concomitant]
  4. ATENOLOL (ATENOLOL) [Concomitant]
  5. NIFEDICAL XL (NIFEDIPINE) [Concomitant]
  6. ACYCLOVIR (ACICLOVIR) (ACICLOVIR) [Concomitant]
  7. HYDROCORTISONE (HYDROCORTISONE) [Concomitant]
  8. CIPRO (CIPROFLOXACIN) [Concomitant]
  9. VAGIFEM (ESTRADIOL) [Concomitant]
  10. FLUCONAZOLE (FLUCONAZOLE) [Concomitant]
  11. INOSITOL (INOSITOL) [Concomitant]
  12. VITAMIN B12 (CYANOCOBALAMIN) [Concomitant]
  13. GLUCOSAMINE-CHONDROITIN (GLUCOSAMINE W/ CHONDROITIN SULFATE) [Concomitant]
  14. VITAMIN D (ERGOCALCIFEROL) [Concomitant]
  15. CRANBERRY (AZO CRANBERRY) [Concomitant]
  16. CALCIUM + D (OS-CAL) [Concomitant]
  17. OXYCONTIN (OXYCODONE HYDROCHLORIDE) [Concomitant]
  18. ASPIRIN (ACETYLSALICYLIC ACID) [Concomitant]
  19. OXYCODONE (OXYCODONE) [Concomitant]

REACTIONS (3)
  - Fatigue [None]
  - Neuropathy peripheral [None]
  - Constipation [None]
